FAERS Safety Report 8339319 (Version 2)
Quarter: 2013Q1

REPORT INFORMATION
  Report Type: Spontaneous
  Country: DK (occurrence: DK)
  Receive Date: 20120117
  Receipt Date: 20130116
  Transmission Date: 20140127
  Serious: Yes (Other)
  Sender: FDA-Public Use
  Company Number: DK-PFIZER INC-2012011474

PATIENT
  Age: 65 Year
  Sex: Male

DRUGS (1)
  1. CHAMPIX [Suspect]
     Indication: SMOKING CESSATION THERAPY
     Dosage: AFTER SCHEDULE, STRENGTH 0.5 MG AND 1MG; 1 MG, 2X/DAY
     Route: 048
     Dates: start: 20090901, end: 20091029

REACTIONS (3)
  - Atrial flutter [Recovering/Resolving]
  - Dizziness [Recovering/Resolving]
  - Dyspnoea [Recovering/Resolving]
